FAERS Safety Report 24382990 (Version 1)
Quarter: 2024Q4

REPORT INFORMATION
  Report Type: Spontaneous
  Country: ID (occurrence: ID)
  Receive Date: 20241001
  Receipt Date: 20241001
  Transmission Date: 20250115
  Serious: Yes (Life-Threatening, Hospitalization, Other)
  Sender: MSN LABORATORIES
  Company Number: ID-MLMSERVICE-20240909-PI184647-00145-1

PATIENT

DRUGS (31)
  1. PREGABALIN [Suspect]
     Active Substance: PREGABALIN
     Indication: Neuralgia
     Dosage: HIGH DOSES (75 MG PER 12 HOUR)
     Route: 065
  2. PREGABALIN [Suspect]
     Active Substance: PREGABALIN
     Indication: Neuralgia
  3. PREGABALIN [Suspect]
     Active Substance: PREGABALIN
     Indication: Sedative therapy
  4. CELECOXIB [Suspect]
     Active Substance: CELECOXIB
     Indication: Neuralgia
     Dosage: HIGH DOSES (100 MG PER 12 HOUR)
     Route: 065
  5. CELECOXIB [Suspect]
     Active Substance: CELECOXIB
     Indication: Sedative therapy
  6. CELECOXIB [Suspect]
     Active Substance: CELECOXIB
     Indication: Neuralgia
  7. DEXMEDETOMIDINE [Suspect]
     Active Substance: DEXMEDETOMIDINE
     Indication: Neuralgia
     Dosage: UP TO 0.8 MICROGRAMS/KILOGRAM BODY WEIGHT/HOUR-HIGH DOSES
     Route: 065
  8. DEXMEDETOMIDINE [Suspect]
     Active Substance: DEXMEDETOMIDINE
     Indication: Sedative therapy
  9. DEXMEDETOMIDINE [Suspect]
     Active Substance: DEXMEDETOMIDINE
     Indication: Neuralgia
  10. FENTANYL [Suspect]
     Active Substance: FENTANYL
     Indication: Neuralgia
     Dosage: INTERMITTENT-HIGH DOSES
     Route: 065
  11. FENTANYL [Suspect]
     Active Substance: FENTANYL
     Indication: Sedative therapy
  12. FENTANYL [Suspect]
     Active Substance: FENTANYL
     Indication: Neuralgia
  13. KETAMINE [Suspect]
     Active Substance: KETAMINE
     Indication: Sedative therapy
     Dosage: INTERMITTENT-HIGH DOSES
     Route: 065
  14. KETAMINE [Suspect]
     Active Substance: KETAMINE
     Indication: Neuralgia
  15. KETAMINE [Suspect]
     Active Substance: KETAMINE
     Indication: Neuralgia
  16. MORPHINE [Suspect]
     Active Substance: MORPHINE
     Indication: Neuralgia
     Dosage: INTERMITTENT-HIGH DOSES
     Route: 042
  17. MORPHINE [Suspect]
     Active Substance: MORPHINE
     Indication: Sedative therapy
     Dosage: HIGH DOSES-15 MG OVER 24 HOURS
     Route: 065
  18. MORPHINE [Suspect]
     Active Substance: MORPHINE
     Indication: Neuralgia
  19. MORPHINE [Suspect]
     Active Substance: MORPHINE
     Indication: Neuralgia
  20. PROPOFOL [Suspect]
     Active Substance: PROPOFOL
     Indication: Sedative therapy
     Dosage: UP TO 100 MG/HOUR-HIGH DOSES
     Route: 065
  21. PROPOFOL [Suspect]
     Active Substance: PROPOFOL
     Indication: Neuralgia
  22. PROPOFOL [Suspect]
     Active Substance: PROPOFOL
     Indication: Neuralgia
  23. TRAMADOL [Suspect]
     Active Substance: TRAMADOL
     Indication: Neuralgia
     Dosage: HIGH DOSES (100 MG PER 8 HOUR)
     Route: 065
  24. TRAMADOL [Suspect]
     Active Substance: TRAMADOL
     Indication: Neuralgia
  25. TRAMADOL [Suspect]
     Active Substance: TRAMADOL
     Indication: Sedative therapy
  26. METHYLPREDNISOLONE [Concomitant]
     Active Substance: METHYLPREDNISOLONE
     Indication: Meningitis bacterial
     Route: 065
  27. DULOXETINE [Concomitant]
     Active Substance: DULOXETINE
     Route: 065
  28. DULOXETINE [Concomitant]
     Active Substance: DULOXETINE
  29. RISPERIDONE [Concomitant]
     Active Substance: RISPERIDONE
     Route: 065
  30. RISPERIDONE [Concomitant]
     Active Substance: RISPERIDONE
  31. MEROPENEM [Concomitant]
     Active Substance: MEROPENEM
     Indication: Meningitis bacterial
     Dosage: 2 G PER 8 HOUR
     Route: 065

REACTIONS (2)
  - Sedation complication [Unknown]
  - Altered state of consciousness [Unknown]
